FAERS Safety Report 7745209-4 (Version None)
Quarter: 2011Q3

REPORT INFORMATION
  Report Type: 
  Country: None (occurrence: None)
  Receive Date: 20110907
  Receipt Date: 20110824
  Transmission Date: 20111222
  Serious: Yes (Life-Threatening, Hospitalization)
  Sender: FDA-Public Use
  Company Number: EU-2011-10157

PATIENT
  Sex: Female
  Weight: 82 kg

DRUGS (7)
  1. SAMSCA [Suspect]
     Indication: INAPPROPRIATE ANTIDIURETIC HORMONE SECRETION
     Dosage: 15 MG MILLIGRAM(S), DAILY DOSE, ORAL
     Route: 048
     Dates: start: 20110603
  2. CARBOPLATIN [Concomitant]
  3. GRANISETRON HCL [Concomitant]
  4. CITALOPRAM HYDROBROMIDE [Concomitant]
  5. MORPHINE [Concomitant]
  6. MIRTAZAPINE [Concomitant]
  7. ETOPOSID (ETOPOSIDE) [Concomitant]

REACTIONS (3)
  - RAPID CORRECTION OF HYPONATRAEMIA [None]
  - HAEMOPTYSIS [None]
  - GASTROINTESTINAL HAEMORRHAGE [None]
